FAERS Safety Report 5121679-5 (Version None)
Quarter: 2006Q4

REPORT INFORMATION
  Report Type: 
  Country: None (occurrence: None)
  Receive Date: 20061006
  Receipt Date: 20060629
  Transmission Date: 20070319
  Serious: Yes (Death)
  Sender: FDA-Public Use
  Company Number: US-GLAXOSMITHKLINE-A0611293A

PATIENT
  Age: 57 Year
  Sex: Female

DRUGS (22)
  1. PAXIL CR [Suspect]
     Indication: DEPRESSION
     Dosage: 25MG PER DAY
     Route: 048
     Dates: start: 20041027
  2. PAXIL [Suspect]
     Indication: DEPRESSION
     Dosage: 10MG PER DAY
     Route: 048
     Dates: start: 20041018, end: 20041027
  3. AMBIEN [Concomitant]
  4. INSULIN [Concomitant]
  5. GLUCOVANCE [Concomitant]
  6. POTASSIUM CHLORIDE [Concomitant]
  7. FUROSEMIDE [Concomitant]
  8. ASPIRIN [Concomitant]
  9. VITAMIN E [Concomitant]
  10. PREMARIN [Concomitant]
  11. ACTONEL [Concomitant]
  12. CALCIUM GLUCONATE [Concomitant]
  13. MIRALAX [Concomitant]
  14. ENTEX CAP [Concomitant]
  15. METFORMIN [Concomitant]
  16. LAMISIL [Concomitant]
  17. PROSCAR [Concomitant]
  18. ACCUPRIL [Concomitant]
  19. PREVACID [Concomitant]
  20. SYNTHROID [Concomitant]
  21. ATIVAN [Concomitant]
  22. KLONOPIN [Concomitant]

REACTIONS (8)
  - ANXIETY [None]
  - CARBON MONOXIDE POISONING [None]
  - COMPLETED SUICIDE [None]
  - CONFUSIONAL STATE [None]
  - PAIN [None]
  - RESTLESSNESS [None]
  - SUICIDAL BEHAVIOUR [None]
  - SUICIDAL IDEATION [None]
